FAERS Safety Report 9198353 (Version 3)
Quarter: 2013Q2

REPORT INFORMATION
  Report Type: Spontaneous
  Country: IT (occurrence: IT)
  Receive Date: 20130329
  Receipt Date: 20130416
  Transmission Date: 20140414
  Serious: Yes (Hospitalization)
  Sender: FDA-Public Use
  Company Number: IT-PFIZER INC-2013097866

PATIENT
  Age: 7 Year
  Sex: Female

DRUGS (4)
  1. IBUPROFEN [Suspect]
     Indication: PYREXIA
     Dosage: 14 ML, UNK
     Route: 048
     Dates: start: 20121017, end: 20121020
  2. PERIDON [Concomitant]
     Indication: ABDOMINAL PAIN UPPER
     Dosage: UNK
     Route: 048
     Dates: start: 20121019, end: 20121020
  3. PERIDON [Concomitant]
     Dosage: UNK
     Dates: start: 20121020, end: 20121020
  4. ALGINOR [Concomitant]
     Indication: ABDOMINAL PAIN UPPER
     Dosage: UNK
     Route: 048
     Dates: start: 20121019, end: 20121020

REACTIONS (9)
  - Acute hepatic failure [Recovered/Resolved]
  - Chromaturia [Recovered/Resolved]
  - Jaundice [Recovered/Resolved]
  - Renal failure [Recovered/Resolved]
  - Tachypnoea [Recovered/Resolved]
  - Vomiting [Recovered/Resolved]
  - Heart rate increased [Unknown]
  - Lymphadenopathy [Unknown]
  - Pleural effusion [Unknown]
